FAERS Safety Report 8887343 (Version 1)
Quarter: 2012Q4

REPORT INFORMATION
  Report Type: 
  Country: AU (occurrence: AU)
  Receive Date: 20121101
  Receipt Date: 20121101
  Transmission Date: 20130627
  Serious: Yes (Hospitalization)
  Sender: FDA-Public Use
  Company Number: AU-PFIZER INC-2012271154

PATIENT
  Age: 52 Year
  Sex: Female

DRUGS (1)
  1. CHAMPIX [Suspect]
     Indication: SMOKING CESSATION THERAPY
     Dosage: UNK
     Dates: start: 201210

REACTIONS (5)
  - Hypersensitivity [Unknown]
  - Ill-defined disorder [Unknown]
  - Emphysema [Unknown]
  - Panic reaction [Unknown]
  - Drug ineffective [Unknown]
